FAERS Safety Report 7391548-9 (Version None)
Quarter: 2011Q2

REPORT INFORMATION
  Report Type: 
  Country: None (occurrence: None)
  Receive Date: 20110404
  Receipt Date: 20110303
  Transmission Date: 20111010
  Serious: Yes (Life-Threatening, Hospitalization)
  Sender: FDA-Public Use
  Company Number: US-BAYER-201035981NA

PATIENT
  Sex: Female
  Weight: 87.528 kg

DRUGS (8)
  1. AZITHROMYCIN [Concomitant]
     Dosage: 500 MG, UNK
     Route: 048
  2. AMOXICILLIN [Concomitant]
     Dosage: 500 MG, UNK
     Route: 048
     Dates: start: 20081015, end: 20081021
  3. ACETAMINOPHEN + COD. PHOSP. [Concomitant]
     Dosage: UNK
     Route: 048
     Dates: start: 20081015
  4. HYDROCODONE BITARTRATE AND ACETAMINOPHEN [Concomitant]
     Dosage: UNK
     Dates: start: 20081029
  5. YAZ [Suspect]
     Indication: MENSTRUATION IRREGULAR
     Dosage: UNK
     Route: 048
     Dates: start: 20080501, end: 20080801
  6. CLARINEX [Concomitant]
     Dosage: 5 MG, UNK
     Route: 048
  7. ALBUTEROL [Concomitant]
  8. MUCINEX DM [Concomitant]
     Dosage: UNK
     Route: 048
     Dates: start: 20081219

REACTIONS (6)
  - GALLBLADDER DISORDER [None]
  - PAIN [None]
  - CHOLELITHIASIS [None]
  - CHOLECYSTITIS [None]
  - NAUSEA [None]
  - GASTRIC DISORDER [None]
